FAERS Safety Report 7810263-8 (Version None)
Quarter: 2011Q4

REPORT INFORMATION
  Report Type: 
  Country: None (occurrence: None)
  Receive Date: 20111012
  Receipt Date: 20110927
  Transmission Date: 20120403
  Serious: Yes (Hospitalization)
  Sender: FDA-Public Use
  Company Number: VE-ROCHE-1002022

PATIENT
  Sex: Female

DRUGS (2)
  1. ALBUTEROL [Concomitant]
  2. XOLAIR [Suspect]
     Indication: ASTHMA
     Dates: start: 20110701

REACTIONS (2)
  - MYALGIA [None]
  - PNEUMONIA [None]
